FAERS Safety Report 21564121 (Version 5)
Quarter: 2023Q1

REPORT INFORMATION
  Report Type: Report from Study
  Country: US (occurrence: US)
  Receive Date: 20221108
  Receipt Date: 20230324
  Transmission Date: 20230418
  Serious: Yes (Other)
  Sender: FDA-Public Use
  Company Number: US-BAUSCH-BL-2022-024846

PATIENT
  Age: 74 Year
  Sex: Female

DRUGS (2)
  1. SILIQ [Suspect]
     Active Substance: BRODALUMAB
     Indication: Psoriatic arthropathy
     Dosage: 210 MG/1.5ML SOSY, ON WEEK 0,1 AND 2
     Route: 058
     Dates: end: 2022
  2. SILIQ [Suspect]
     Active Substance: BRODALUMAB
     Indication: Product use in unapproved indication
     Dosage: INJECT 210 MG ON WEEK 0, 1 AND 2 AS DIRECTED
     Route: 058
     Dates: start: 202212

REACTIONS (6)
  - Rheumatoid arthritis [Unknown]
  - Dizziness [Unknown]
  - Blood pressure increased [Unknown]
  - Headache [Unknown]
  - Injection site reaction [Unknown]
  - Product use in unapproved indication [Unknown]
